FAERS Safety Report 9260241 (Version 1)
Quarter: 2013Q2

REPORT INFORMATION
  Report Type: Spontaneous
  Country: US (occurrence: US)
  Receive Date: 20130429
  Receipt Date: 20130429
  Transmission Date: 20140414
  Serious: Yes (Hospitalization)
  Sender: FDA-Public Use
  Company Number: US-PFIZER INC-2013130906

PATIENT
  Sex: Female

DRUGS (1)
  1. LYRICA [Suspect]
     Indication: MULTIPLE SCLEROSIS
     Dosage: UNK

REACTIONS (6)
  - Hypersensitivity [Unknown]
  - Malaise [Unknown]
  - Confusional state [Unknown]
  - Dysarthria [Unknown]
  - Thinking abnormal [Unknown]
  - Off label use [Unknown]
